FAERS Safety Report 13155300 (Version 1)
Quarter: 2017Q1

REPORT INFORMATION
  Report Type: Spontaneous
  Country: US (occurrence: US)
  Receive Date: 20170126
  Receipt Date: 20170126
  Transmission Date: 20170428
  Serious: No
  Sender: FDA-Public Use
  Company Number: US-PFIZER INC-2016209444

PATIENT
  Age: 60 Year
  Sex: Male
  Weight: 115.6 kg

DRUGS (1)
  1. VIAGRA [Suspect]
     Active Substance: SILDENAFIL CITRATE
     Indication: ERECTILE DYSFUNCTION
     Dosage: 100 MG, UNK (COUPLE OF TIMES)
     Route: 048
     Dates: start: 201611

REACTIONS (5)
  - Expired product administered [Unknown]
  - Product physical issue [Unknown]
  - Drug ineffective [Unknown]
  - Suspected counterfeit product [Unknown]
  - Product colour issue [Unknown]

NARRATIVE: CASE EVENT DATE: 201611
